FAERS Safety Report 20216458 (Version 2)
Quarter: 2023Q2

REPORT INFORMATION
  Report Type: Spontaneous
  Country: CN (occurrence: None)
  Receive Date: 20211222
  Receipt Date: 20230630
  Transmission Date: 20230721
  Serious: Yes (Other)
  Sender: FDA-Public Use
  Company Number: CN-ROCHE-2982438

PATIENT
  Age: 53 Year
  Sex: Female

DRUGS (51)
  1. POLIVY [Suspect]
     Active Substance: POLATUZUMAB VEDOTIN-PIIQ
     Indication: Mantle cell lymphoma
     Dosage: POLATUZUMAB VEDOTIN + LINPERLISIB TABLETS
     Route: 065
     Dates: start: 20230509
  2. POLIVY [Suspect]
     Active Substance: POLATUZUMAB VEDOTIN-PIIQ
     Dosage: POLATUZUMAB VEDOTIN + LINPERLISIB TABLETS
     Route: 065
     Dates: start: 20230531
  3. POLIVY [Suspect]
     Active Substance: POLATUZUMAB VEDOTIN-PIIQ
     Dosage: POLATUZUMAB VEDOTIN + LINPERLISIB TABLETS
     Route: 065
     Dates: start: 20230624
  4. GAZYVA [Suspect]
     Active Substance: OBINUTUZUMAB
     Indication: Mantle cell lymphoma
     Route: 042
     Dates: start: 20211008
  5. GAZYVA [Suspect]
     Active Substance: OBINUTUZUMAB
     Route: 042
     Dates: start: 20211105
  6. GAZYVA [Suspect]
     Active Substance: OBINUTUZUMAB
     Route: 042
     Dates: start: 20211201
  7. GAZYVA [Suspect]
     Active Substance: OBINUTUZUMAB
     Route: 042
     Dates: start: 20220316
  8. RITUXIMAB [Suspect]
     Active Substance: RITUXIMAB
     Indication: Mantle cell lymphoma
     Dosage: R-CHOP
     Route: 065
     Dates: start: 20170328
  9. RITUXIMAB [Suspect]
     Active Substance: RITUXIMAB
     Dosage: R-HYPER-CVAD-B
     Route: 065
     Dates: start: 20170425
  10. RITUXIMAB [Suspect]
     Active Substance: RITUXIMAB
     Dosage: R2-DHAP
     Route: 065
     Dates: start: 20170602
  11. RITUXIMAB [Suspect]
     Active Substance: RITUXIMAB
     Dosage: R2-CHOP
     Route: 065
     Dates: start: 20170907
  12. RITUXIMAB [Suspect]
     Active Substance: RITUXIMAB
     Route: 065
     Dates: start: 20171015
  13. RITUXIMAB [Suspect]
     Active Substance: RITUXIMAB
     Indication: Mantle cell lymphoma
     Dosage: IR
     Route: 041
     Dates: start: 20190708
  14. IBRUTINIB [Concomitant]
     Active Substance: IBRUTINIB
     Indication: Mantle cell lymphoma
     Dosage: IR
     Dates: start: 20190708
  15. IBRUTINIB [Concomitant]
     Active Substance: IBRUTINIB
     Indication: Leukaemia
  16. CYCLOPHOSPHAMIDE [Concomitant]
     Active Substance: CYCLOPHOSPHAMIDE
     Indication: Mantle cell lymphoma
     Dosage: R-CHOP
     Dates: start: 20170328
  17. CYCLOPHOSPHAMIDE [Concomitant]
     Active Substance: CYCLOPHOSPHAMIDE
     Indication: Leukaemia
     Dosage: R-HYPER-CVAD-B
     Dates: start: 20170425
  18. CYCLOPHOSPHAMIDE [Concomitant]
     Active Substance: CYCLOPHOSPHAMIDE
     Dosage: R2-CHOP
     Dates: start: 20170907
  19. VINCRISTINE [Concomitant]
     Active Substance: VINCRISTINE
     Indication: Mantle cell lymphoma
     Dosage: R-CHOP
     Dates: start: 20170328
  20. VINCRISTINE [Concomitant]
     Active Substance: VINCRISTINE
     Indication: Leukaemia
     Dosage: R-HYPER-CVAD-B
     Dates: start: 20170425
  21. VINCRISTINE [Concomitant]
     Active Substance: VINCRISTINE
     Dosage: R2-CHOP
     Dates: start: 20170907
  22. PREDNISONE [Concomitant]
     Active Substance: PREDNISONE
     Indication: Mantle cell lymphoma
     Dosage: R-CHOP
     Dates: start: 20170328
  23. PREDNISONE [Concomitant]
     Active Substance: PREDNISONE
     Indication: Leukaemia
     Dosage: R-HYPER-CVAD-B
     Dates: start: 20170425
  24. PREDNISONE [Concomitant]
     Active Substance: PREDNISONE
     Dosage: R2-CHOP
     Dates: start: 20170907
  25. METHOTREXATE [Concomitant]
     Active Substance: METHOTREXATE
     Indication: Mantle cell lymphoma
     Dosage: R-HYPER-CVAD-B
     Dates: start: 20170425
  26. METHOTREXATE [Concomitant]
     Active Substance: METHOTREXATE
     Indication: Leukaemia
  27. CYTARABINE [Concomitant]
     Active Substance: CYTARABINE
     Indication: Mantle cell lymphoma
     Dosage: R-HYPER-CVAD-B
     Dates: start: 20170425
  28. CYTARABINE [Concomitant]
     Active Substance: CYTARABINE
     Indication: Leukaemia
     Dosage: R2-DHAP
     Dates: start: 20170602
  29. CYTARABINE [Concomitant]
     Active Substance: CYTARABINE
     Dosage: R2-DHAP
     Dates: start: 20171015
  30. LENALIDOMIDE [Concomitant]
     Active Substance: LENALIDOMIDE
     Indication: Mantle cell lymphoma
     Dosage: R2-DHAP
     Dates: start: 20170602
  31. LENALIDOMIDE [Concomitant]
     Active Substance: LENALIDOMIDE
     Indication: Leukaemia
     Dosage: R2-CHOP
     Dates: start: 20170907
  32. LENALIDOMIDE [Concomitant]
     Active Substance: LENALIDOMIDE
     Dosage: R2-DHAP
     Dates: start: 20171015
  33. CISPLATIN [Concomitant]
     Active Substance: CISPLATIN
     Indication: Mantle cell lymphoma
     Dosage: R2-DHAP
     Dates: start: 20170602
  34. CISPLATIN [Concomitant]
     Active Substance: CISPLATIN
     Indication: Leukaemia
     Dosage: R2-DHAP
     Dates: start: 20171015
  35. VENETOCLAX [Concomitant]
     Active Substance: VENETOCLAX
     Indication: Mantle cell lymphoma
     Dates: start: 20210930
  36. VENETOCLAX [Concomitant]
     Active Substance: VENETOCLAX
     Indication: Leukaemia
     Dates: start: 20211001
  37. VENETOCLAX [Concomitant]
     Active Substance: VENETOCLAX
     Dosage: 50 MG D4-8, 100 MG D9 ~ 17
     Dates: start: 20211105
  38. VENETOCLAX [Concomitant]
     Active Substance: VENETOCLAX
     Dates: start: 20211201
  39. VENETOCLAX [Concomitant]
     Active Substance: VENETOCLAX
     Dosage: BORTEZOMIB +VENETOCLAX
     Dates: start: 20220316
  40. BENDAMUSTINE [Concomitant]
     Active Substance: BENDAMUSTINE
     Indication: Mantle cell lymphoma
     Dates: start: 20211105
  41. BENDAMUSTINE [Concomitant]
     Active Substance: BENDAMUSTINE
     Indication: Leukaemia
     Dates: start: 20211201
  42. VITAMIN B1 [Concomitant]
     Active Substance: THIAMINE HYDROCHLORIDE
     Indication: Mantle cell lymphoma
     Dates: start: 20211006
  43. VITAMIN B1 [Concomitant]
     Active Substance: THIAMINE HYDROCHLORIDE
     Indication: Leukaemia
  44. DOXORUBICIN [Concomitant]
     Active Substance: DOXORUBICIN
     Indication: Mantle cell lymphoma
     Dosage: R-CHOP
     Dates: start: 20170328
  45. DOXORUBICIN [Concomitant]
     Active Substance: DOXORUBICIN
     Indication: Leukaemia
     Dosage: R-HYPER-CVAD-B
     Dates: start: 20170425
  46. DOXORUBICIN [Concomitant]
     Active Substance: DOXORUBICIN
     Dosage: R2-CHOP
     Dates: start: 20170907
  47. DEXAMETHASONE [Concomitant]
     Active Substance: DEXAMETHASONE
     Indication: Mantle cell lymphoma
     Dosage: R-HYPER-CVAD-B
     Dates: start: 20170425
  48. DEXAMETHASONE [Concomitant]
     Active Substance: DEXAMETHASONE
     Indication: Leukaemia
     Dosage: R2-DHAP
     Dates: start: 20170602
  49. DEXAMETHASONE [Concomitant]
     Active Substance: DEXAMETHASONE
     Dosage: R2-DHAP
     Dates: start: 20171015
  50. LINPERLISIB [Concomitant]
  51. BORTEZOMIB [Concomitant]
     Active Substance: BORTEZOMIB

REACTIONS (9)
  - Agranulocytosis [Unknown]
  - White blood cell count decreased [Unknown]
  - Platelet count decreased [Recovering/Resolving]
  - Pyrexia [Unknown]
  - Disease recurrence [Unknown]
  - Rash [Unknown]
  - Chest discomfort [Unknown]
  - Cholecystitis [Unknown]
  - Ventricular extrasystoles [Unknown]
